FAERS Safety Report 14809395 (Version 1)
Quarter: 2018Q2

REPORT INFORMATION
  Report Type: Report from Study
  Country: US (occurrence: US)
  Receive Date: 20180425
  Receipt Date: 20180425
  Transmission Date: 20180711
  Serious: No
  Sender: FDA-Public Use
  Company Number: US-AMGEN-USASL2018020764

PATIENT
  Age: 59 Year
  Sex: Female

DRUGS (5)
  1. REPATHA [Suspect]
     Active Substance: EVOLOCUMAB
     Dosage: 140 MG, Q2WK
     Route: 065
     Dates: start: 201707
  2. REPATHA [Suspect]
     Active Substance: EVOLOCUMAB
     Dosage: 140 MG, Q3WK
     Route: 065
  3. REPATHA [Suspect]
     Active Substance: EVOLOCUMAB
  4. INSULIN [Concomitant]
     Active Substance: INSULIN NOS
     Dosage: UNK
  5. REPATHA [Suspect]
     Active Substance: EVOLOCUMAB
     Indication: HYPERCHOLESTEROLAEMIA
     Dosage: UNK
     Route: 065

REACTIONS (16)
  - Intentional product misuse [Unknown]
  - Raynaud^s phenomenon [Unknown]
  - Cough [Recovered/Resolved]
  - Immune system disorder [Unknown]
  - Epistaxis [Unknown]
  - Blood glucose abnormal [Unknown]
  - Adverse drug reaction [Unknown]
  - Rhinorrhoea [Unknown]
  - Oropharyngeal pain [Unknown]
  - Peripheral vascular disorder [Unknown]
  - Chronic sinusitis [Unknown]
  - Heart rate decreased [Unknown]
  - Adverse reaction [Unknown]
  - Back pain [Unknown]
  - Abdominal discomfort [Unknown]
  - Influenza [Not Recovered/Not Resolved]

NARRATIVE: CASE EVENT DATE: 201707
